FAERS Safety Report 6157893-X (Version None)
Quarter: 2009Q2

REPORT INFORMATION
  Report Type: 
  Country: None (occurrence: None)
  Receive Date: 20090417
  Receipt Date: 20090415
  Transmission Date: 20091009
  Serious: Yes (Death)
  Sender: FDA-Public Use
  Company Number: US-RANBAXY-2009RR-21003

PATIENT
  Age: 59 Year
  Sex: Female

DRUGS (7)
  1. HYDROCODONE BITARTRATE AND ACETAMINOPHEN [Suspect]
     Indication: DRUG USE FOR UNKNOWN INDICATION
     Dosage: 505 MG, UNK
     Route: 048
  2. RISPERADOL [Concomitant]
  3. TRAZODONE HCL [Concomitant]
  4. CLONAZEPAM [Concomitant]
  5. ATENOLOL [Concomitant]
  6. ZIPRASIDONE HCL [Concomitant]
  7. SERTRALINE HCL [Concomitant]

REACTIONS (14)
  - ACUTE RESPIRATORY DISTRESS SYNDROME [None]
  - APNOEA [None]
  - BLOOD PRESSURE SYSTOLIC INCREASED [None]
  - COMPLETED SUICIDE [None]
  - DISSEMINATED INTRAVASCULAR COAGULATION [None]
  - DRUG TOXICITY [None]
  - FLUID OVERLOAD [None]
  - GASTROINTESTINAL SOUNDS ABNORMAL [None]
  - HEPATIC FAILURE [None]
  - HYPOTENSION [None]
  - MULTIPLE DRUG OVERDOSE INTENTIONAL [None]
  - SEPSIS [None]
  - THROMBOSIS [None]
  - UNRESPONSIVE TO STIMULI [None]
